FAERS Safety Report 19752571 (Version 3)
Quarter: 2021Q3

REPORT INFORMATION
  Report Type: Spontaneous
  Country: US (occurrence: US)
  Receive Date: 20210826
  Receipt Date: 20210831
  Transmission Date: 20211014
  Serious: No
  Sender: FDA-Public Use
  Company Number: US-PFIZER INC-2015039633

PATIENT
  Age: 55 Year
  Sex: Female

DRUGS (25)
  1. ATARAX [Concomitant]
     Active Substance: HYDROXYZINE HYDROCHLORIDE
     Indication: PRURITUS
     Dosage: 25 MG (TAKE 1 TAB BY MOUTH 1?2 TABLETS UP TO TWICE DAILY AS NEEDED FOR ITCHING)
     Route: 048
  2. OXYCODONE [Concomitant]
     Active Substance: OXYCODONE
     Dosage: 10 MG (1?2 TABS EVERY 4 HOURS AS NEEDED)
  3. DELTASONE [Concomitant]
     Active Substance: PREDNISONE
     Dosage: 20 MG(TAKE BY MOUTH. PRN FOR FLY BITES)
     Route: 048
  4. DESYREL [Concomitant]
     Active Substance: TRAZODONE HYDROCHLORIDE
     Dosage: 150 MG, 1X/DAY (TAKE 1.5 TABS BY MOUTH AT BEDTIME)
     Route: 048
  5. ZANAFLEX [Concomitant]
     Active Substance: TIZANIDINE HYDROCHLORIDE
     Dosage: 4 MG, 2X/DAY (TAKE 2 TABLET BY MOUTH ONCE DAILY)
     Route: 048
  6. VITAMIN D3 [Concomitant]
     Active Substance: CHOLECALCIFEROL
     Dosage: 1000 MG, 1X/DAY
     Route: 048
  7. BIOTIN [Concomitant]
     Active Substance: BIOTIN
     Dosage: TAKE BY MOUTH, 5000 UG
     Route: 048
  8. MOBIC [Concomitant]
     Active Substance: MELOXICAM
     Indication: ANTIINFLAMMATORY THERAPY
     Dosage: 15 MG, 1X/DAY
     Route: 048
  9. PRILOSEC [Concomitant]
     Active Substance: OMEPRAZOLE MAGNESIUM
     Dosage: 20 MG, 1X/DAY
     Route: 048
  10. LINZESS [Concomitant]
     Active Substance: LINACLOTIDE
     Dosage: 145 UG, 1X/DAY
     Route: 048
  11. MS CONTIN [Concomitant]
     Active Substance: MORPHINE SULFATE
     Indication: ANTIINFLAMMATORY THERAPY
     Dosage: 15 MG, 3X/DAY
     Route: 048
  12. LYRICA [Suspect]
     Active Substance: PREGABALIN
     Dosage: 100 MG, 1X/DAY
     Route: 048
  13. VITAMIN C ACID [Concomitant]
     Active Substance: ASCORBIC ACID
     Dosage: 1000 MG
     Route: 048
     Dates: start: 20150122
  14. WELLBUTRIN XL [Concomitant]
     Active Substance: BUPROPION HYDROCHLORIDE
     Dosage: 150 MG, 3X/DAY
     Route: 048
  15. CALCIUM CARBONATE. [Concomitant]
     Active Substance: CALCIUM CARBONATE
     Dosage: 3125 MG, 1X/DAY
     Route: 048
  16. POLYETHYLENE GLYCOL 3350. [Concomitant]
     Active Substance: POLYETHYLENE GLYCOL 3350
     Dosage: 420G 2 LITERS 1 DAY FOR CONSTIPATION. IF NO GOOD RESPONSE, THEN USE OTHER 2 LITERS THE FOLLOWING DAY
  17. PRISTIQ EXTENDED?RELEASE [Suspect]
     Active Substance: DESVENLAFAXINE SUCCINATE
     Dosage: 50 MG, 1X/DAY
     Route: 048
  18. EPIPEN [Concomitant]
     Active Substance: EPINEPHRINE
     Dosage: 0.3 ML (INJECT 0.3 ML INTO THE MUSCLE AS DIRECTED)
     Route: 030
  19. MS CONTIN [Concomitant]
     Active Substance: MORPHINE SULFATE
     Dosage: 30 MG, 3X/DAY
     Route: 048
  20. XANAX [Suspect]
     Active Substance: ALPRAZOLAM
     Indication: ANXIETY
     Dosage: 0.5 MG, 3X/DAY
     Route: 048
  21. LOFIBRA [FENOFIBRATE] [Concomitant]
     Dosage: 200 MG, 1X/DAY
     Route: 048
  22. PROCTOCORT [HYDROCORTISONE] [Concomitant]
     Indication: HAEMORRHOIDS
     Dosage: UNK
     Route: 054
  23. EMLA [Concomitant]
     Active Substance: LIDOCAINE\PRILOCAINE
     Dosage: UNK
  24. CLARITIN [Concomitant]
     Active Substance: LORATADINE
     Dosage: 10 MG, 2X/DAY
     Route: 048
  25. BACTROBAN [Concomitant]
     Active Substance: MUPIROCIN\MUPIROCIN CALCIUM
     Dosage: UNK, 2X/DAY (APPLY 2 TIMES DAILY. TO AFFECTED AREAS)

REACTIONS (2)
  - Withdrawal syndrome [Unknown]
  - Irritability [Unknown]
